FAERS Safety Report 5199683-0 (Version None)
Quarter: 2007Q1

REPORT INFORMATION
  Report Type: 
  Country: None (occurrence: None)
  Receive Date: 20070105
  Receipt Date: 20061227
  Transmission Date: 20070707
  Serious: Yes (Death)
  Sender: FDA-Public Use
  Company Number: US-JNJFOC-20061100109

PATIENT
  Sex: Male
  Weight: 81.65 kg

DRUGS (4)
  1. RAZADYNE [Suspect]
     Indication: DRUG USE FOR UNKNOWN INDICATION
     Route: 048
  2. NAMENDA [Concomitant]
     Route: 048
  3. ADVAIR DISKUS 100/50 [Concomitant]
     Indication: CHRONIC OBSTRUCTIVE PULMONARY DISEASE
     Route: 055
  4. ALBUTEROL [Concomitant]

REACTIONS (3)
  - CEREBRAL HAEMORRHAGE [None]
  - DECUBITUS ULCER [None]
  - OSTEOMYELITIS [None]
